FAERS Safety Report 25045189 (Version 3)
Quarter: 2025Q2

REPORT INFORMATION
  Report Type: Report from Study
  Country: US (occurrence: US)
  Receive Date: 20250306
  Receipt Date: 20250528
  Transmission Date: 20250716
  Serious: Yes (Other)
  Sender: IPSEN BIOPHARMACEUTICALS, INC.
  Company Number: US-IPSEN Group, Research and Development-2025-04899

PATIENT
  Age: 41 Year
  Sex: Female
  Weight: 57.6 kg

DRUGS (6)
  1. IQIRVO [Suspect]
     Active Substance: ELAFIBRANOR
     Indication: Dermatitis atopic
     Route: 048
     Dates: start: 20240906
  2. IQIRVO [Suspect]
     Active Substance: ELAFIBRANOR
     Indication: Off label use
  3. IQIRVO [Suspect]
     Active Substance: ELAFIBRANOR
     Indication: Primary biliary cholangitis
  4. URSODIOL [Concomitant]
     Active Substance: URSODIOL
  5. MYFORTIC [Concomitant]
     Active Substance: MYCOPHENOLATE SODIUM
  6. DUPIXENT [Concomitant]
     Active Substance: DUPILUMAB

REACTIONS (2)
  - Renal impairment [Unknown]
  - Off label use [Unknown]

NARRATIVE: CASE EVENT DATE: 20240906
